FAERS Safety Report 7728847-4 (Version None)
Quarter: 2011Q3

REPORT INFORMATION
  Report Type: 
  Country: None (occurrence: None)
  Receive Date: 20110906
  Receipt Date: 20110822
  Transmission Date: 20111222
  Serious: Yes (Other)
  Sender: FDA-Public Use
  Company Number: US-JNJFOC-20110811592

PATIENT
  Age: 58 Year
  Sex: Female
  Weight: 77.11 kg

DRUGS (11)
  1. PREMARIN [Suspect]
     Route: 065
  2. PREMARIN [Suspect]
     Route: 065
  3. LYRICA [Suspect]
     Indication: NEURALGIA
     Route: 048
     Dates: start: 20110801, end: 20110801
  4. LYRICA [Suspect]
     Route: 048
     Dates: start: 20110731, end: 20110731
  5. ULTRAM [Suspect]
     Indication: PAIN
     Route: 065
     Dates: end: 20110701
  6. ADVIL LIQUI-GELS [Suspect]
     Indication: NEURALGIA
     Route: 065
     Dates: end: 20110730
  7. ETODOLAC [Suspect]
     Indication: ANTIINFLAMMATORY THERAPY
     Route: 065
     Dates: end: 20110701
  8. PREMARIN [Suspect]
     Indication: VULVOVAGINAL DRYNESS
     Route: 065
  9. LYRICA [Suspect]
     Dosage: TWICE A DAY
     Route: 048
     Dates: start: 20091201
  10. LYRICA [Suspect]
     Route: 048
     Dates: start: 20110802
  11. LYRICA [Suspect]
     Route: 048
     Dates: end: 20100701

REACTIONS (11)
  - RASH PRURITIC [None]
  - DRUG INEFFECTIVE [None]
  - DIABETES MELLITUS [None]
  - OEDEMA PERIPHERAL [None]
  - RASH ERYTHEMATOUS [None]
  - DISTURBANCE IN ATTENTION [None]
  - URTICARIA [None]
  - DIZZINESS [None]
  - TENDON RUPTURE [None]
  - DYSPNOEA [None]
  - WEIGHT DECREASED [None]
